FAERS Safety Report 9501957 (Version 1)
Quarter: 2013Q3

REPORT INFORMATION
  Report Type: Spontaneous
  Country: GB (occurrence: GB)
  Receive Date: 20130905
  Receipt Date: 20130905
  Transmission Date: 20140515
  Serious: Yes (Hospitalization)
  Sender: FDA-Public Use
  Company Number: GB-MYLANLABS-2013S1019198

PATIENT
  Age: 74 Year
  Sex: Female

DRUGS (1)
  1. OMEPRAZOLE [Suspect]
     Indication: COLITIS
     Route: 048
     Dates: start: 20130720, end: 20130730

REACTIONS (2)
  - Skin exfoliation [Not Recovered/Not Resolved]
  - Dysphagia [Unknown]
